FAERS Safety Report 9752383 (Version 1)
Quarter: 2013Q4

REPORT INFORMATION
  Report Type: Spontaneous
  Country: GB (occurrence: None)
  Receive Date: 20131211
  Receipt Date: 20131211
  Transmission Date: 20140711
  Serious: Yes (Other)
  Sender: FDA-Public Use
  Company Number: AUR-APL-2013-10135

PATIENT
  Age: 23 Year
  Sex: Female
  Weight: 63.5 kg

DRUGS (2)
  1. LEVETIRACETAM (LEVETIRACETAM) [Suspect]
     Dosage: 800MG (400 MG, 2 IN 1 D), ORAL
     Route: 048
     Dates: start: 20130517
  2. CARBAMAZEPINE (CARBAMAZEPINE) [Suspect]
     Dosage: 200 MG (100 MG, 2 IN 1 D) ORAL
     Route: 048

REACTIONS (11)
  - Hallucination [None]
  - Tinnitus [None]
  - Chest pain [None]
  - Dizziness [None]
  - Dry mouth [None]
  - Hyperhidrosis [None]
  - Somnolence [None]
  - Dyskinesia [None]
  - Supraventricular tachycardia [None]
  - Neuralgia [None]
  - Thinking abnormal [None]
